FAERS Safety Report 5729158-9 (Version None)
Quarter: 2008Q2

REPORT INFORMATION
  Report Type: 
  Country: None (occurrence: None)
  Receive Date: 20080506
  Receipt Date: 20080424
  Transmission Date: 20081010
  Serious: Yes (Hospitalization)
  Sender: FDA-Public Use
  Company Number: FR-PFIZER INC-2008036556

PATIENT
  Sex: Female

DRUGS (2)
  1. XANAX [Suspect]
     Route: 048
     Dates: start: 20071001, end: 20071001
  2. NOCTRAN 10 [Suspect]
     Route: 048

REACTIONS (3)
  - PRURITUS [None]
  - RASH ERYTHEMATOUS [None]
  - RASH MACULO-PAPULAR [None]
